FAERS Safety Report 21434370 (Version 3)
Quarter: 2023Q2

REPORT INFORMATION
  Report Type: Spontaneous
  Country: SK (occurrence: SK)
  Receive Date: 20221010
  Receipt Date: 20230515
  Transmission Date: 20230722
  Serious: Yes (Hospitalization, Other)
  Sender: FDA-Public Use
  Company Number: SK-VERTEX PHARMACEUTICALS-2022-008350

PATIENT
  Sex: Female

DRUGS (7)
  1. POSACONAZOLE [Suspect]
     Active Substance: POSACONAZOLE
     Indication: Product used for unknown indication
     Dosage: 3-0-3
     Route: 048
     Dates: start: 20220510
  2. ELEXACAFTOR\IVACAFTOR\TEZACAFTOR [Suspect]
     Active Substance: ELEXACAFTOR\IVACAFTOR\TEZACAFTOR
     Indication: Cystic fibrosis
     Dosage: 2 TABS IN AM
     Route: 048
     Dates: start: 202010, end: 2022
  3. ELEXACAFTOR\IVACAFTOR\TEZACAFTOR [Suspect]
     Active Substance: ELEXACAFTOR\IVACAFTOR\TEZACAFTOR
     Dosage: 2 TABS AM
     Route: 048
     Dates: start: 20220709
  4. ELEXACAFTOR\IVACAFTOR\TEZACAFTOR [Suspect]
     Active Substance: ELEXACAFTOR\IVACAFTOR\TEZACAFTOR
     Dosage: REDUCED DOSE WITH NO EVENING IVACAFTOR DOSE, ONLY KAFTRIO AND KALYDECO IN THE MORNING TWICE A WEEK
     Route: 048
     Dates: start: 20220510, end: 20220518
  5. KALYDECO [Suspect]
     Active Substance: IVACAFTOR
     Indication: Cystic fibrosis
     Dosage: 1 TAB (150 MILLIGRAM [MG]) AT NIGHT
     Route: 048
     Dates: start: 202010, end: 2022
  6. KALYDECO [Suspect]
     Active Substance: IVACAFTOR
     Dosage: 01 TAB PM
     Route: 048
     Dates: start: 20220709
  7. KALYDECO [Suspect]
     Active Substance: IVACAFTOR
     Dosage: REDUCED DOSE WITH NO EVENING IVACAFTOR DOSE, ONLY KAFTRIO AND KALYDECO IN THE MORNING TWICE A WEEK
     Route: 048
     Dates: start: 20220510, end: 20220518

REACTIONS (5)
  - Aspartate aminotransferase increased [Recovered/Resolved]
  - Drug-induced liver injury [Recovered/Resolved]
  - Dyspepsia [Recovered/Resolved]
  - Alanine aminotransferase increased [Recovered/Resolved]
  - Gamma-glutamyltransferase increased [Unknown]

NARRATIVE: CASE EVENT DATE: 20220514
